FAERS Safety Report 22265862 (Version 1)
Quarter: 2023Q2

REPORT INFORMATION
  Report Type: Spontaneous
  Country: US (occurrence: None)
  Receive Date: 20230426
  Receipt Date: 20230426
  Transmission Date: 20230721
  Serious: No
  Sender: FDA-Public Use
  Company Number: None

PATIENT
  Age: 67 Year
  Sex: Female

DRUGS (1)
  1. OPSUMIT [Suspect]
     Active Substance: MACITENTAN
     Indication: Pulmonary arterial hypertension
     Dosage: FREQUENCY : DAILY;?
     Route: 048
     Dates: start: 20220805

REACTIONS (5)
  - Embolism [None]
  - Transient ischaemic attack [None]
  - Hypoaesthesia [None]
  - Limb discomfort [None]
  - Muscular weakness [None]

NARRATIVE: CASE EVENT DATE: 20230420
